FAERS Safety Report 6337336-3 (Version None)
Quarter: 2009Q3

REPORT INFORMATION
  Report Type: 
  Country: None (occurrence: None)
  Receive Date: 20090828
  Receipt Date: 20090828
  Transmission Date: 20100115
  Serious: Yes (Death)
  Sender: FDA-Public Use
  Company Number: None

PATIENT
  Age: 67 Year
  Sex: Male
  Weight: 99.7 kg

DRUGS (2)
  1. ALTEPLASE-ACTIVASE 100M/100CC GENENTECH [Suspect]
     Indication: ISCHAEMIC STROKE
     Dosage: 10% OF 0.9MG/KG IV BOLUS
     Route: 040
     Dates: start: 20090304, end: 20090304
  2. ALTEPLASE-ACTIVASE [Suspect]
     Dosage: 90% 0.9MG/KG OVER 60 MIN IV DRIP
     Route: 041

REACTIONS (2)
  - HAEMORRHAGIC STROKE [None]
  - RESPIRATORY FAILURE [None]
